FAERS Safety Report 7133662-9 (Version None)
Quarter: 2010Q4

REPORT INFORMATION
  Report Type: 
  Country: None (occurrence: None)
  Receive Date: 20101202
  Receipt Date: 20091029
  Transmission Date: 20110411
  Serious: Yes (Hospitalization)
  Sender: FDA-Public Use
  Company Number: ZA-BAYER-200938025GPV

PATIENT

DRUGS (1)
  1. YAZ [Suspect]
     Route: 048
     Dates: start: 20091004, end: 20091025

REACTIONS (1)
  - PULMONARY EMBOLISM [None]
